FAERS Safety Report 7105707-3 (Version None)
Quarter: 2010Q4

REPORT INFORMATION
  Report Type: 
  Country: None (occurrence: None)
  Receive Date: 20101116
  Receipt Date: 20101102
  Transmission Date: 20110411
  Serious: Yes (Other)
  Sender: FDA-Public Use
  Company Number: PHHY2010US68054

PATIENT
  Sex: Male
  Weight: 73.923 kg

DRUGS (2)
  1. AFINITOR [Suspect]
     Indication: RENAL CELL CARCINOMA
     Dosage: 10 MG, UNK
     Route: 048
  2. AFINITOR [Suspect]
     Dosage: 5 MG, UNK
     Route: 048

REACTIONS (1)
  - CELLULITIS [None]
